FAERS Safety Report 21949987 (Version 2)
Quarter: 2023Q1

REPORT INFORMATION
  Report Type: Spontaneous
  Country: US (occurrence: None)
  Receive Date: 20230203
  Receipt Date: 20230317
  Transmission Date: 20230417
  Serious: Yes (Death)
  Sender: FDA-Public Use
  Company Number: 2023A026582

PATIENT
  Age: 26237 Day
  Sex: Male
  Weight: 89.8 kg

DRUGS (1)
  1. IMFINZI [Suspect]
     Active Substance: DURVALUMAB
     Indication: Lung neoplasm malignant
     Dosage: UNKNOWN
     Route: 042
     Dates: start: 20220215

REACTIONS (1)
  - Death [Fatal]

NARRATIVE: CASE EVENT DATE: 20230113
